FAERS Safety Report 6169966-6 (Version None)
Quarter: 2009Q2

REPORT INFORMATION
  Report Type: 
  Country: None (occurrence: None)
  Receive Date: 20090428
  Receipt Date: 20090422
  Transmission Date: 20091009
  Serious: Yes (Other)
  Sender: FDA-Public Use
  Company Number: FR-JNJFOC-20090405102

PATIENT
  Age: 15 Month
  Sex: Female
  Weight: 10 kg

DRUGS (1)
  1. KETODERM [Suspect]
     Indication: DERMATITIS DIAPER
     Route: 003
     Dates: start: 20090325, end: 20090402

REACTIONS (4)
  - DRUG DISPENSING ERROR [None]
  - GENITAL BURNING SENSATION [None]
  - MEDICATION ERROR [None]
  - SKIN EXFOLIATION [None]
